FAERS Safety Report 17592988 (Version 4)
Quarter: 2020Q2

REPORT INFORMATION
  Report Type: Spontaneous
  Country: IT (occurrence: IT)
  Receive Date: 20200327
  Receipt Date: 20200429
  Transmission Date: 20200713
  Serious: Yes (Other)
  Sender: FDA-Public Use
  Company Number: IT-009507513-2003ITA007914

PATIENT
  Sex: Female
  Weight: 18 kg

DRUGS (2)
  1. TEMODAL [Suspect]
     Active Substance: TEMOZOLOMIDE
     Indication: NEUROBLASTOMA
     Dosage: 100 MILLIGRAM/SQ. METER, DAILY, 5 CONSECUTIVE DAYS EVERY 3 WEEKS
     Route: 048
     Dates: start: 201607, end: 201812
  2. IRINOTECAN HYDROCHLORIDE. [Suspect]
     Active Substance: IRINOTECAN HYDROCHLORIDE
     Indication: NEUROBLASTOMA
     Dosage: 50 MILLIGRAM/SQ. METER DAILY
     Route: 042

REACTIONS (5)
  - Fungaemia [Unknown]
  - Pulmonary mass [Not Recovered/Not Resolved]
  - Immunodeficiency [Recovered/Resolved]
  - Product use in unapproved indication [Unknown]
  - Bone marrow toxicity [Recovered/Resolved]

NARRATIVE: CASE EVENT DATE: 201607
